FAERS Safety Report 6218195-6 (Version None)
Quarter: 2009Q2

REPORT INFORMATION
  Report Type: 
  Country: None (occurrence: None)
  Receive Date: 20090608
  Receipt Date: 20090527
  Transmission Date: 20091009
  Serious: Yes (Hospitalization)
  Sender: FDA-Public Use
  Company Number: SE-PFIZER INC-2009169781

PATIENT
  Age: 73 Year

DRUGS (7)
  1. SUNITINIB MALATE [Suspect]
     Indication: RENAL CANCER METASTATIC
     Dosage: 37.5 MG, 1X/DAY
     Dates: start: 20080505, end: 20080813
  2. CEFADROXIL [Concomitant]
     Dosage: 1 G, 1X/DAY
     Route: 065
  3. INFLUENZA VACCINE [Concomitant]
     Route: 065
  4. OXYNORM [Concomitant]
     Dosage: 5 MG, UNK
     Route: 065
  5. TRADOLAN [Concomitant]
     Dosage: 200 MG, UNK
     Route: 065
  6. LYRICA [Concomitant]
     Dosage: 225 MG, UNK
     Route: 065
  7. ALVEDON [Concomitant]
     Dosage: 1000 MG, 4X/DAY
     Route: 065

REACTIONS (1)
  - SKIN ULCER [None]
